FAERS Safety Report 15485444 (Version 8)
Quarter: 2019Q1

REPORT INFORMATION
  Report Type: Report from Study
  Country: US (occurrence: US)
  Receive Date: 20181010
  Receipt Date: 20190306
  Transmission Date: 20190417
  Serious: Yes (Other)
  Sender: FDA-Public Use
  Company Number: PHHY2018US120592

PATIENT
  Age: 71 Year
  Sex: Male

DRUGS (14)
  1. AFINITOR [Suspect]
     Active Substance: EVEROLIMUS
     Dosage: 5 MG, QD
     Route: 048
     Dates: start: 20180803, end: 20180823
  2. LEVAQUIN [Concomitant]
     Active Substance: LEVOFLOXACIN
     Indication: BACTERIAL INFECTION
     Dosage: 1 DF, QD
     Route: 048
     Dates: start: 20180531, end: 20180610
  3. KAYEXALATE [Concomitant]
     Active Substance: SODIUM POLYSTYRENE SULFONATE
     Indication: ELECTROLYTE SUBSTITUTION THERAPY
     Dosage: 15 GM/60 ML
     Route: 065
     Dates: start: 20180515
  4. MULTIVITAMINS [Concomitant]
     Active Substance: VITAMINS
     Indication: SUPPLEMENTATION THERAPY
     Dosage: 1 DF, QD
     Route: 048
     Dates: start: 20150225
  5. AFINITOR [Suspect]
     Active Substance: EVEROLIMUS
     Indication: RENAL CELL CARCINOMA
     Dosage: 10 MG,QD
     Route: 048
     Dates: start: 20180505, end: 20180802
  6. HYGROTON [Concomitant]
     Active Substance: CHLORTHALIDONE
     Indication: OEDEMA PERIPHERAL
     Dosage: 25 MG, QD
     Route: 048
     Dates: start: 20180225
  7. TYLENOL [Concomitant]
     Active Substance: ACETAMINOPHEN
     Indication: BACK PAIN
  8. DELTASONE [Concomitant]
     Active Substance: PREDNISONE
     Indication: PRODUCT USED FOR UNKNOWN INDICATION
     Dosage: 20 MG, QD
     Route: 048
     Dates: start: 20180727, end: 20180806
  9. PROPRANOLOL HYDROCHLORIDE. [Concomitant]
     Active Substance: PROPRANOLOL HYDROCHLORIDE
     Indication: HYPERTENSION
     Dosage: 80 MG, QD
     Route: 048
     Dates: start: 20150701
  10. LEVOFLOXACIN. [Concomitant]
     Active Substance: LEVOFLOXACIN
     Indication: BACTERIAL INFECTION
     Dosage: 750 MG, QD
     Route: 048
     Dates: start: 20180709
  11. SULAR [Concomitant]
     Active Substance: NISOLDIPINE
     Indication: HYPERTENSION
     Dosage: 17 MG, QD (AS NEEDED)
     Route: 048
     Dates: start: 201512
  12. MAGNESIUM [Concomitant]
     Active Substance: MAGNESIUM
     Indication: HYPOMAGNESAEMIA
     Dosage: 30 MG, QD
     Route: 048
     Dates: start: 20170108
  13. DELTASONE [Concomitant]
     Active Substance: PREDNISONE
     Dosage: 20 MG, QD
     Route: 048
     Dates: start: 20180824
  14. TYLENOL [Concomitant]
     Active Substance: ACETAMINOPHEN
     Indication: HEADACHE
     Dosage: 325 MG, TID
     Route: 048
     Dates: start: 20180717

REACTIONS (25)
  - Atrioventricular block first degree [Unknown]
  - Lumbar spinal stenosis [Unknown]
  - Atelectasis [Unknown]
  - Abdominal pain [Recovered/Resolved]
  - Nausea [Recovered/Resolved]
  - Metastatic renal cell carcinoma [Unknown]
  - Left ventricular hypertrophy [Unknown]
  - Neoplasm [Unknown]
  - Dyspnoea [Recovered/Resolved]
  - Pneumonitis [Recovered/Resolved]
  - Blood pressure increased [Unknown]
  - Electrocardiogram ST segment depression [Unknown]
  - Pleural effusion [Unknown]
  - Flank pain [Recovered/Resolved]
  - Lung disorder [Unknown]
  - Bacterial infection [Unknown]
  - Dyspnoea [Unknown]
  - Vomiting [Recovered/Resolved]
  - Ventricular extrasystoles [Unknown]
  - Cough [Recovered/Resolved]
  - Malignant neoplasm progression [Unknown]
  - Cough [Unknown]
  - Haemoglobin decreased [Unknown]
  - Nasopharyngitis [Unknown]
  - Pneumonia [Unknown]

NARRATIVE: CASE EVENT DATE: 20180712
